FAERS Safety Report 8694585 (Version 3)
Quarter: 2012Q4

REPORT INFORMATION
  Report Type: Report from Study
  Country: GB (occurrence: GB)
  Receive Date: 20120731
  Receipt Date: 20120920
  Transmission Date: 20130627
  Serious: Yes (Hospitalization)
  Sender: FDA-Public Use
  Company Number: GB-PFIZER INC-2012162061

PATIENT
  Age: 69 Year
  Sex: Female
  Weight: 181 kg

DRUGS (5)
  1. AXITINIB [Suspect]
     Indication: SARCOMA
     Dosage: 5 mg, cyclic
     Route: 048
     Dates: start: 20120531, end: 20120701
  2. AMLODIPINE [Concomitant]
     Indication: HYPERTENSION
     Dosage: 10 mg, 2x/day
     Route: 048
     Dates: start: 20120525
  3. MACROGOL [Concomitant]
     Indication: CONSTIPATION
     Dosage: 1 sachet, 2x/day
     Route: 048
     Dates: start: 20120619
  4. CYCLIZINE [Concomitant]
     Indication: NAUSEA
     Dosage: 30 mg, 3x/day
     Route: 048
     Dates: start: 20120619
  5. BISOPROLOL [Concomitant]
     Indication: SINUS TACHYCARDIA
     Dosage: 1.25 mg, 1x/day
     Route: 048
     Dates: start: 20120620

REACTIONS (2)
  - Haemoptysis [Not Recovered/Not Resolved]
  - Fatigue [Not Recovered/Not Resolved]
